FAERS Safety Report 18443905 (Version 1)
Quarter: 2020Q4

REPORT INFORMATION
  Report Type: Spontaneous
  Country: GB (occurrence: GB)
  Receive Date: 20201030
  Receipt Date: 20201030
  Transmission Date: 20210114
  Serious: Yes (Life-Threatening)
  Sender: FDA-Public Use
  Company Number: GB-BEH-2020123839

PATIENT
  Age: 33 Year
  Sex: Female
  Weight: 53.07 kg

DRUGS (4)
  1. RHOPHYLAC [Suspect]
     Active Substance: HUMAN RHO(D) IMMUNE GLOBULIN
     Indication: RHESUS ANTIGEN NEGATIVE
     Dosage: 1500 INTERNATIONAL UNIT
     Route: 051
     Dates: start: 20191002
  2. RHOPHYLAC [Suspect]
     Active Substance: HUMAN RHO(D) IMMUNE GLOBULIN
     Dosage: UNK
     Route: 051
     Dates: start: 20191002
  3. RHOPHYLAC [Suspect]
     Active Substance: HUMAN RHO(D) IMMUNE GLOBULIN
     Indication: RHESUS ANTIGEN NEGATIVE
     Dosage: 1500 INTERNATIONAL UNIT
     Route: 051
     Dates: start: 20191002
  4. RHOPHYLAC [Suspect]
     Active Substance: HUMAN RHO(D) IMMUNE GLOBULIN
     Dosage: UNK
     Route: 051
     Dates: start: 20191002

REACTIONS (10)
  - Head discomfort [Unknown]
  - Eye movement disorder [Unknown]
  - Conjunctival haemorrhage [Recovered/Resolved with Sequelae]
  - Fatigue [Unknown]
  - Anaphylactic reaction [Recovered/Resolved with Sequelae]
  - Loss of consciousness [Unknown]
  - Blood pressure decreased [Unknown]
  - Tremor [Unknown]
  - No adverse event [Unknown]
  - Exposure during pregnancy [Unknown]

NARRATIVE: CASE EVENT DATE: 20191002
